FAERS Safety Report 9642077 (Version 2)
Quarter: 2013Q4

REPORT INFORMATION
  Report Type: Spontaneous
  Country: US (occurrence: US)
  Receive Date: 20131023
  Receipt Date: 20131028
  Transmission Date: 20140711
  Serious: Yes (Death, Other)
  Sender: FDA-Public Use
  Company Number: US-ROCHE-1291520

PATIENT
  Age: 63 Year
  Sex: Male

DRUGS (1)
  1. ZELBORAF [Suspect]
     Indication: METASTATIC MALIGNANT MELANOMA
     Route: 065
     Dates: start: 201304, end: 201306

REACTIONS (4)
  - Death [Fatal]
  - Cerebrovascular accident [Unknown]
  - Metastases to lung [Unknown]
  - Herpes zoster [Unknown]
